FAERS Safety Report 18555265 (Version 1)
Quarter: 2020Q4

REPORT INFORMATION
  Report Type: Spontaneous
  Country: JP (occurrence: JP)
  Receive Date: 20201127
  Receipt Date: 20201127
  Transmission Date: 20210114
  Serious: Yes (Hospitalization)
  Sender: FDA-Public Use
  Company Number: JP-ASTRAZENECA-2020SE08769

PATIENT
  Age: 72 Year
  Sex: Male

DRUGS (4)
  1. TENELIGLIPTIN HYDROBROMIDE HYDRATE [Concomitant]
     Active Substance: TENELIGLIPTIN HYDROBROMIDE HYDRATE
     Indication: TYPE 2 DIABETES MELLITUS
     Route: 065
  2. GLIMEPIRIDE. [Concomitant]
     Active Substance: GLIMEPIRIDE
     Indication: TYPE 2 DIABETES MELLITUS
     Dosage: 2.0MG UNKNOWN
     Route: 065
  3. GLIMEPIRIDE. [Concomitant]
     Active Substance: GLIMEPIRIDE
     Indication: TYPE 2 DIABETES MELLITUS
     Dosage: 4.0MG UNKNOWN
     Route: 065
  4. IMFINZI [Suspect]
     Active Substance: DURVALUMAB
     Indication: NON-SMALL CELL LUNG CANCER
     Route: 041
     Dates: start: 20190925, end: 20200415

REACTIONS (3)
  - Latent autoimmune diabetes in adults [Not Recovered/Not Resolved]
  - Lung disorder [Unknown]
  - Blood glucose increased [Unknown]

NARRATIVE: CASE EVENT DATE: 202001
